FAERS Safety Report 7722895-6 (Version None)
Quarter: 2011Q3

REPORT INFORMATION
  Report Type: 
  Country: None (occurrence: None)
  Receive Date: 20110901
  Receipt Date: 20110825
  Transmission Date: 20111222
  Serious: No
  Sender: FDA-Public Use
  Company Number: US-BIOGENIDEC-2011BI033021

PATIENT
  Age: 55 Year
  Sex: Female

DRUGS (1)
  1. TYSABRI [Suspect]
     Indication: MULTIPLE SCLEROSIS
     Route: 042
     Dates: start: 20090126

REACTIONS (9)
  - COGNITIVE DISORDER [None]
  - FEELING HOT [None]
  - FATIGUE [None]
  - URINARY RETENTION [None]
  - MULTIPLE SCLEROSIS [None]
  - HEADACHE [None]
  - IRRITABILITY [None]
  - GAIT DISTURBANCE [None]
  - HYPOAESTHESIA [None]
